FAERS Safety Report 18717179 (Version 3)
Quarter: 2022Q3

REPORT INFORMATION
  Report Type: Report from Study
  Country: US (occurrence: US)
  Receive Date: 20210108
  Receipt Date: 20220817
  Transmission Date: 20221027
  Serious: Yes (Other)
  Sender: FDA-Public Use
  Company Number: US-TAKEDA-2020TUS002122

PATIENT
  Sex: Female
  Weight: 86.168 kg

DRUGS (5)
  1. VEDOLIZUMAB [Suspect]
     Active Substance: VEDOLIZUMAB
     Indication: Colitis ulcerative
     Dosage: 300 MILLIGRAM
     Route: 042
     Dates: start: 2019
  2. VEDOLIZUMAB [Suspect]
     Active Substance: VEDOLIZUMAB
     Dosage: 300 MILLIGRAM, Q4WEEKS
     Route: 042
  3. ADALIMUMAB [Suspect]
     Active Substance: ADALIMUMAB
     Indication: Product used for unknown indication
     Dosage: UNK
     Route: 065
  4. OXYCODONE [Concomitant]
     Active Substance: OXYCODONE
     Indication: Arthralgia
     Dosage: UNK
  5. OXYCODONE [Concomitant]
     Active Substance: OXYCODONE
     Indication: Back pain

REACTIONS (9)
  - Spinal operation [Unknown]
  - Joint injury [Unknown]
  - Colitis ulcerative [Unknown]
  - Arthropathy [Unknown]
  - Burning sensation [Unknown]
  - Fall [Unknown]
  - Therapeutic reaction time decreased [Unknown]
  - Therapy interrupted [Unknown]
  - Off label use [Unknown]
